FAERS Safety Report 6307365-4 (Version None)
Quarter: 2009Q3

REPORT INFORMATION
  Report Type: 
  Country: None (occurrence: None)
  Receive Date: 20090810
  Receipt Date: 20090724
  Transmission Date: 20100115
  Serious: Yes (Other)
  Sender: FDA-Public Use
  Company Number: 2009AL000705

PATIENT
  Age: 51 Year
  Sex: Female

DRUGS (16)
  1. DIGOXIN [Suspect]
     Indication: HEART RATE IRREGULAR
     Dosage: PO
     Route: 048
  2. ISOSORBIDE [Concomitant]
  3. LOTREL [Concomitant]
  4. ANTIVERT [Concomitant]
  5. OMNICEF [Concomitant]
  6. SPIRONOLACTONE [Concomitant]
  7. NORVASC [Concomitant]
  8. FOLIC ACID [Concomitant]
  9. ASPIRIN [Concomitant]
  10. CLONIDINE [Concomitant]
  11. PLAVIX [Concomitant]
  12. BENICAR [Concomitant]
  13. LEXAPRO [Concomitant]
  14. COREG [Concomitant]
  15. IMDUR [Concomitant]
  16. ZOCOR [Concomitant]

REACTIONS (6)
  - ANXIETY [None]
  - CEREBROVASCULAR ACCIDENT [None]
  - ECONOMIC PROBLEM [None]
  - MULTIPLE INJURIES [None]
  - PAIN [None]
  - THERAPEUTIC AGENT TOXICITY [None]
